FAERS Safety Report 8390206 (Version 2)
Quarter: 2013Q1

REPORT INFORMATION
  Report Type: Spontaneous
  Country: CA (occurrence: CA)
  Receive Date: 20120203
  Receipt Date: 20130329
  Transmission Date: 20140127
  Serious: Yes (Hospitalization, Other)
  Sender: FDA-Public Use
  Company Number: CA-JNJFOC-20120200866

PATIENT
  Age: 76 None
  Sex: Male
  Weight: 65.77 kg

DRUGS (4)
  1. REMICADE [Suspect]
     Indication: COLITIS ULCERATIVE
     Route: 042
     Dates: start: 20110106, end: 20110608
  2. REMICADE [Suspect]
     Indication: COLITIS ULCERATIVE
     Route: 042
     Dates: start: 201012
  3. IMURAN [Concomitant]
     Indication: COLITIS ULCERATIVE
     Route: 065
     Dates: start: 20091009, end: 201110
  4. MEZAVANT [Concomitant]
     Indication: COLITIS ULCERATIVE
     Route: 065
     Dates: start: 2009, end: 201110

REACTIONS (3)
  - Drug ineffective [Unknown]
  - Pneumonia [Recovered/Resolved]
  - Colectomy [Unknown]
